FAERS Safety Report 8195494-2 (Version None)
Quarter: 2012Q1

REPORT INFORMATION
  Report Type: 
  Country: None (occurrence: None)
  Receive Date: 20120308
  Receipt Date: 20120305
  Transmission Date: 20120608
  Serious: Yes (Other)
  Sender: FDA-Public Use
  Company Number: PHHY2012ES019527

PATIENT
  Age: 81 Year
  Sex: Male

DRUGS (2)
  1. EXELON [Suspect]
     Dosage: 9.5 MG/24HOURS, UNK
     Route: 062
     Dates: start: 20120120, end: 20120207
  2. EXELON [Suspect]
     Dosage: 4.6 MG/24HOURS, UNK
     Route: 062
     Dates: end: 20120119

REACTIONS (2)
  - MOBILITY DECREASED [None]
  - MUSCLE RIGIDITY [None]
